FAERS Safety Report 18890365 (Version 1)
Quarter: 2021Q1

REPORT INFORMATION
  Report Type: Spontaneous
  Country: US (occurrence: US)
  Receive Date: 20210214
  Receipt Date: 20210214
  Transmission Date: 20210420
  Serious: No
  Sender: FDA-Public Use
  Company Number: US-TEVA-2021-US-1870426

PATIENT
  Sex: Female

DRUGS (1)
  1. OXYTROL FOR WOMEN [Suspect]
     Active Substance: OXYBUTYNIN
     Indication: HYPERTONIC BLADDER
     Dosage: ONE PATCH EVERY 4 DAYS
     Route: 062

REACTIONS (4)
  - Product adhesion issue [Unknown]
  - Wrong technique in product usage process [Unknown]
  - Product complaint [Unknown]
  - Therapeutic product effect decreased [Unknown]
